FAERS Safety Report 23881491 (Version 1)
Quarter: 2024Q2

REPORT INFORMATION
  Report Type: Spontaneous
  Country: US (occurrence: US)
  Receive Date: 20240521
  Receipt Date: 20240521
  Transmission Date: 20240716
  Serious: No
  Sender: FDA-Public Use
  Company Number: US-Stemline Therapeutics, Inc.-2024ST001312

PATIENT
  Age: 83 Year
  Sex: Female
  Weight: 78.4 kg

DRUGS (6)
  1. ORSERDU [Suspect]
     Active Substance: ELACESTRANT
     Indication: Breast cancer metastatic
     Route: 048
     Dates: start: 20230814
  2. ORSERDU [Suspect]
     Active Substance: ELACESTRANT
     Dosage: TWO PILLS IN THE MORNING AND TWO IN THE EVENING
     Route: 048
  3. Biotin gummies [Concomitant]
     Indication: Supplementation therapy
     Dosage: 5000 MCG/DAILY
     Route: 048
  4. OMEGA 3 [Concomitant]
     Active Substance: CAPSAICIN
     Indication: Supplementation therapy
     Dosage: 1 TABLET/DAILY
     Route: 048
  5. Calcium/Vit D [Concomitant]
     Indication: Supplementation therapy
     Dosage: 1 TABLET/DAILY
     Route: 048
  6. MINERALS\VITAMINS [Concomitant]
     Active Substance: MINERALS\VITAMINS
     Indication: Supplementation therapy
     Dosage: 1 TABLET/DAILY
     Route: 048

REACTIONS (4)
  - Pain [Recovering/Resolving]
  - Nasopharyngitis [Recovering/Resolving]
  - Product use issue [Unknown]
  - Gastrooesophageal reflux disease [Unknown]

NARRATIVE: CASE EVENT DATE: 20231201
